FAERS Safety Report 18318332 (Version 1)
Quarter: 2020Q3

REPORT INFORMATION
  Report Type: Spontaneous
  Country: US (occurrence: US)
  Receive Date: 20200926
  Receipt Date: 20200926
  Transmission Date: 20201103
  Serious: Yes (Death)
  Sender: FDA-Public Use
  Company Number: None

PATIENT
  Age: 90 Year
  Sex: Female
  Weight: 54.45 kg

DRUGS (11)
  1. IBUPROFEN. [Concomitant]
     Active Substance: IBUPROFEN
  2. METAMUCIL [Concomitant]
     Active Substance: PLANTAGO SEED
  3. MIRALAX [Concomitant]
     Active Substance: POLYETHYLENE GLYCOL 3350
  4. PROPRANOLOL [Concomitant]
     Active Substance: PROPRANOLOL HYDROCHLORIDE
  5. ATORVASTATIN [Concomitant]
     Active Substance: ATORVASTATIN
  6. MULTIVITAMIN [Concomitant]
     Active Substance: VITAMINS
  7. PROCHLORPERAZINE. [Concomitant]
     Active Substance: PROCHLORPERAZINE
  8. GABAPENTIN. [Concomitant]
     Active Substance: GABAPENTIN
  9. CAPECITABINE. [Suspect]
     Active Substance: CAPECITABINE
     Indication: HEPATIC CANCER
     Route: 048
     Dates: start: 20200618, end: 20200923
  10. CALTRATE + VITAMIND [Concomitant]
  11. AMLODIPINE [Concomitant]
     Active Substance: AMLODIPINE BESYLATE

REACTIONS (1)
  - Death [None]

NARRATIVE: CASE EVENT DATE: 20200924
